FAERS Safety Report 18500688 (Version 1)
Quarter: 2020Q4

REPORT INFORMATION
  Report Type: Spontaneous
  Country: JP (occurrence: JP)
  Receive Date: 20201113
  Receipt Date: 20201113
  Transmission Date: 20210114
  Serious: Yes (Other)
  Sender: FDA-Public Use
  Company Number: JP-GLAXOSMITHKLINE-JP2020JPN222495

PATIENT
  Age: 89 Year
  Sex: Female

DRUGS (2)
  1. VALACICLOVIR HYDROCHLORIDE [Suspect]
     Active Substance: VALACYCLOVIR HYDROCHLORIDE
     Indication: DISSEMINATED VARICELLA ZOSTER VIRUS INFECTION
     Dosage: 3000 MG
     Route: 048
  2. VALACICLOVIR HYDROCHLORIDE [Suspect]
     Active Substance: VALACYCLOVIR HYDROCHLORIDE
     Dosage: 1000 MG
     Route: 048

REACTIONS (4)
  - Toxic encephalopathy [Unknown]
  - Acute kidney injury [Unknown]
  - Tremor [Unknown]
  - Altered state of consciousness [Recovered/Resolved]
